FAERS Safety Report 11619117 (Version 3)
Quarter: 2015Q4

REPORT INFORMATION
  Report Type: Spontaneous
  Country: GB (occurrence: GB)
  Receive Date: 20151012
  Receipt Date: 20151020
  Transmission Date: 20160304
  Serious: Yes (Death)
  Sender: FDA-Public Use
  Company Number: GB-SA-2015SA159273

PATIENT
  Age: 68 Year
  Sex: Male

DRUGS (2)
  1. G-CSF [Concomitant]
     Active Substance: GRANULOCYTE COLONY-STIMULATING FACTOR NOS
  2. JEVTANA [Suspect]
     Active Substance: CABAZITAXEL
     Indication: PROSTATE CANCER METASTATIC
     Dosage: STRENGTH: 20 MG/M2
     Route: 065

REACTIONS (4)
  - Dyspnoea [Fatal]
  - Myocardial infarction [Fatal]
  - Chest pain [Fatal]
  - Fatigue [Unknown]
